FAERS Safety Report 15135045 (Version 2)
Quarter: 2018Q3

REPORT INFORMATION
  Report Type: Spontaneous
  Country: US (occurrence: US)
  Receive Date: 20180712
  Receipt Date: 20180716
  Transmission Date: 20181010
  Serious: No
  Sender: FDA-Public Use
  Company Number: US-PFIZER INC-2018279539

PATIENT
  Age: 55 Year
  Sex: Male
  Weight: 60.32 kg

DRUGS (9)
  1. RELPAX [Suspect]
     Active Substance: ELETRIPTAN HYDROBROMIDE
     Indication: HEADACHE
     Dosage: UNK
     Dates: start: 2011
  2. ZOMIG [Concomitant]
     Active Substance: ZOLMITRIPTAN
     Dosage: UNK
  3. RELPAX [Suspect]
     Active Substance: ELETRIPTAN HYDROBROMIDE
     Indication: PAIN
     Dosage: 40 MG, UNK (ONCE EVERY 2?3 DAYS)
     Route: 048
  4. ENDOCET [Concomitant]
     Active Substance: ACETAMINOPHEN\OXYCODONE HYDROCHLORIDE
     Dosage: UNK UNK, DAILY (2 A DAY)
  5. ENDOCET [Concomitant]
     Active Substance: ACETAMINOPHEN\OXYCODONE HYDROCHLORIDE
     Dosage: UNK UNK, DAILY (4 A DAY)
  6. INDOCIN [Suspect]
     Active Substance: INDOMETHACIN
     Indication: NECK PAIN
     Dosage: UNK
  7. RELPAX [Suspect]
     Active Substance: ELETRIPTAN HYDROBROMIDE
     Indication: MIGRAINE
     Dosage: UNK
  8. RELPAX [Suspect]
     Active Substance: ELETRIPTAN HYDROBROMIDE
     Dosage: 1 DF, UNK [THERE ARE SOME DAYS WHEN HE WILL WAIT TWO HOURS AND TAKE ANOTHER TABLET]
  9. INDOCIN [Suspect]
     Active Substance: INDOMETHACIN
     Indication: HEADACHE

REACTIONS (4)
  - Headache [Unknown]
  - Neck pain [Not Recovered/Not Resolved]
  - Drug ineffective [Unknown]
  - Condition aggravated [Unknown]

NARRATIVE: CASE EVENT DATE: 201603
